FAERS Safety Report 7276813-8 (Version None)
Quarter: 2011Q1

REPORT INFORMATION
  Report Type: 
  Country: None (occurrence: None)
  Receive Date: 20110207
  Receipt Date: 20110125
  Transmission Date: 20110831
  Serious: Yes (Hospitalization)
  Sender: FDA-Public Use
  Company Number: US-BIOGENIDEC-2010BI040714

PATIENT
  Age: 45 Year
  Sex: Female
  Weight: 83 kg

DRUGS (1)
  1. TYSABRI [Suspect]
     Indication: MULTIPLE SCLEROSIS
     Route: 042
     Dates: start: 20100819

REACTIONS (7)
  - FIBULA FRACTURE [None]
  - LOWER LIMB FRACTURE [None]
  - TIBIA FRACTURE [None]
  - PNEUMONIA [None]
  - FALL [None]
  - ARTHROPATHY [None]
  - BURSITIS [None]
